FAERS Safety Report 25058053 (Version 2)
Quarter: 2025Q1

REPORT INFORMATION
  Report Type: Spontaneous
  Country: CO (occurrence: CO)
  Receive Date: 20250310
  Receipt Date: 20250317
  Transmission Date: 20250409
  Serious: Yes (Other)
  Sender: ALEXION PHARMACEUTICALS
  Company Number: CO-AstraZeneca-CH-00821996A

PATIENT

DRUGS (1)
  1. CALQUENCE [Suspect]
     Active Substance: ACALABRUTINIB
     Indication: Acute lymphocytic leukaemia
     Dosage: 100 MILLIGRAM, Q12H

REACTIONS (3)
  - Abdominal pain [Recovering/Resolving]
  - Nephrolithiasis [Recovering/Resolving]
  - Off label use [Unknown]
